FAERS Safety Report 7003348-X (Version None)
Quarter: 2010Q3

REPORT INFORMATION
  Report Type: 
  Country: None (occurrence: None)
  Receive Date: 20100916
  Receipt Date: 20100913
  Transmission Date: 20110219
  Serious: Yes (Other)
  Sender: FDA-Public Use
  Company Number: TRP_07251_2010

PATIENT
  Sex: Female

DRUGS (2)
  1. RIBAVARIN [Suspect]
     Indication: HEPATITIS C
     Dates: start: 20100213
  2. PEG-INTRON [Suspect]
     Indication: HEPATITIS C
     Dates: start: 20100213

REACTIONS (8)
  - ANAEMIA [None]
  - DYSPNOEA [None]
  - DYSSTASIA [None]
  - FEELING ABNORMAL [None]
  - FEELING COLD [None]
  - GAIT DISTURBANCE [None]
  - HEART RATE INCREASED [None]
  - PRESYNCOPE [None]
